FAERS Safety Report 5744506-1 (Version None)
Quarter: 2008Q2

REPORT INFORMATION
  Report Type: 
  Country: None (occurrence: None)
  Receive Date: 20080520
  Receipt Date: 20080422
  Transmission Date: 20081010
  Serious: No
  Sender: FDA-Public Use
  Company Number: US-BAYER-200811409NA

PATIENT
  Age: 47 Year
  Sex: Female
  Weight: 60 kg

DRUGS (2)
  1. LEUKINE [Suspect]
     Indication: DRUG USE FOR UNKNOWN INDICATION
     Dosage: AS USED: 0.42 ML
     Route: 058
     Dates: start: 20070312, end: 20071201
  2. LEUKINE [Suspect]
     Route: 058
     Dates: start: 20080301

REACTIONS (2)
  - RASH [None]
  - URTICARIA [None]
